FAERS Safety Report 26181935 (Version 1)
Quarter: 2025Q4

REPORT INFORMATION
  Report Type: Spontaneous
  Country: US (occurrence: US)
  Receive Date: 20251221
  Receipt Date: 20251221
  Transmission Date: 20260118
  Serious: Yes (Hospitalization, Other)
  Sender: PURDUE
  Company Number: US-PURDUE-USA-2025-0323091

PATIENT
  Age: 51 Year
  Sex: Male

DRUGS (7)
  1. VARENICLINE TARTRATE [Interacting]
     Active Substance: VARENICLINE TARTRATE
     Indication: Smoking cessation therapy
     Dosage: UNK
     Route: 048
  2. VARENICLINE TARTRATE [Interacting]
     Active Substance: VARENICLINE TARTRATE
     Dosage: UNK (DOSE INCREASED)
     Route: 048
  3. OLANZAPINE [Interacting]
     Active Substance: OLANZAPINE
     Indication: Schizoaffective disorder bipolar type
     Dosage: 20 MILLIGRAM
     Route: 065
  4. LURASIDONE [Interacting]
     Active Substance: LURASIDONE
     Indication: Schizoaffective disorder bipolar type
     Dosage: 60 MILLIGRAM
     Route: 065
  5. HYDROXYZINE [Interacting]
     Active Substance: HYDROXYZINE HYDROCHLORIDE
     Indication: Schizoaffective disorder bipolar type
     Dosage: UNK
     Route: 065
  6. LAMOTRIGINE [Interacting]
     Active Substance: LAMOTRIGINE
     Indication: Schizoaffective disorder bipolar type
     Dosage: UNK
     Route: 065
  7. DULOXETINE [Interacting]
     Active Substance: DULOXETINE
     Indication: Schizoaffective disorder bipolar type
     Dosage: UNK
     Route: 065

REACTIONS (5)
  - Neuroleptic malignant syndrome [Recovered/Resolved]
  - Inappropriate antidiuretic hormone secretion [Recovering/Resolving]
  - Polydipsia psychogenic [Recovering/Resolving]
  - Drug interaction [Unknown]
  - Drug withdrawal syndrome [Unknown]
